FAERS Safety Report 20382485 (Version 1)
Quarter: 2022Q1

REPORT INFORMATION
  Report Type: Spontaneous
  Country: US (occurrence: US)
  Receive Date: 20220127
  Receipt Date: 20220127
  Transmission Date: 20220423
  Serious: Yes (Hospitalization, Other)
  Sender: FDA-Public Use
  Company Number: US-PIRAMAL PHARMA LIMITED-2021-PEL-000097

PATIENT

DRUGS (2)
  1. GABLOFEN [Suspect]
     Active Substance: BACLOFEN
     Indication: Product used for unknown indication
     Dosage: 1300 MICROGRAM/DAY
     Route: 037
  2. GABLOFEN [Suspect]
     Active Substance: BACLOFEN
     Dosage: 100 MICROGRAM BOLUS
     Route: 037
     Dates: start: 20210204

REACTIONS (5)
  - Withdrawal syndrome [Unknown]
  - Rhabdomyolysis [Unknown]
  - Drug ineffective [Unknown]
  - Device breakage [Unknown]
  - Device dislocation [Unknown]
